FAERS Safety Report 16210843 (Version 1)
Quarter: 2019Q2

REPORT INFORMATION
  Report Type: Spontaneous
  Country: EE (occurrence: EE)
  Receive Date: 20190418
  Receipt Date: 20190418
  Transmission Date: 20190711
  Serious: Yes (Hospitalization)
  Sender: FDA-Public Use
  Company Number: EE-B.I. PHARMACEUTICALS,INC./RIDGEFIELD-2019-BI-017048

PATIENT
  Age: 63 Year
  Sex: Male

DRUGS (4)
  1. JENTADUETO [Suspect]
     Active Substance: LINAGLIPTIN\METFORMIN HYDROCHLORIDE
     Indication: TYPE 2 DIABETES MELLITUS
     Dosage: STRENGTH: 2,5/1000 MG
     Route: 048
     Dates: start: 2018
  2. ROSUVASTATIN. [Concomitant]
     Active Substance: ROSUVASTATIN
     Indication: TYPE 2 DIABETES MELLITUS
     Route: 065
  3. INSULIN [Concomitant]
     Active Substance: INSULIN NOS
     Indication: TYPE 2 DIABETES MELLITUS
     Route: 065
     Dates: start: 20190311
  4. JENTADUETO [Suspect]
     Active Substance: LINAGLIPTIN\METFORMIN HYDROCHLORIDE
     Dosage: STRENGTH: 2,5/1000 MG
     Route: 048
     Dates: start: 20190311, end: 20190405

REACTIONS (1)
  - Pancreatitis necrotising [Recovered/Resolved]

NARRATIVE: CASE EVENT DATE: 20190405
